FAERS Safety Report 12441980 (Version 2)
Quarter: 2016Q2

REPORT INFORMATION
  Report Type: Spontaneous
  Country: FR (occurrence: FR)
  Receive Date: 20160607
  Receipt Date: 20160628
  Transmission Date: 20160815
  Serious: Yes (Hospitalization, Other)
  Sender: FDA-Public Use
  Company Number: FR-WATSON-2016-11707

PATIENT
  Age: 25 Year
  Sex: Male

DRUGS (3)
  1. LEVOMEPROMAZINE [Concomitant]
     Active Substance: LEVOMEPROMAZINE
     Indication: PSYCHOTIC DISORDER
     Dosage: 300 MG, DAILY
     Route: 065
     Dates: start: 2014
  2. LOXAPINE (WATSON LABORATORIES) [Suspect]
     Active Substance: LOXAPINE SUCCINATE
     Indication: PSYCHOTIC DISORDER
     Dosage: 400 MG, DAILY
     Route: 065
     Dates: start: 201410
  3. RISPERIDONE (UNKNOWN) [Suspect]
     Active Substance: RISPERIDONE
     Indication: PSYCHOTIC DISORDER
     Dosage: 4 MG, DAILY
     Route: 048
     Dates: start: 201410

REACTIONS (3)
  - Rhabdomyolysis [Recovered/Resolved]
  - Deep vein thrombosis [Recovering/Resolving]
  - Acute kidney injury [Unknown]

NARRATIVE: CASE EVENT DATE: 2014
